FAERS Safety Report 7479383 (Version 7)
Quarter: 2013Q1

REPORT INFORMATION
  Report Type: Spontaneous
  Country: US (occurrence: US)
  Receive Date: 20100716
  Receipt Date: 20130313
  Transmission Date: 20140127
  Serious: No
  Sender: FDA-Public Use
  Company Number: US-B.I. PHARMACEUTICALS,INC./RIDGEFIELD-2010-BP-07555BP

PATIENT
  Sex: Female

DRUGS (5)
  1. SPIRIVA HANDIHALER [Suspect]
     Indication: CHRONIC OBSTRUCTIVE PULMONARY DISEASE
     Dosage: 18 MCG
     Route: 055
     Dates: start: 201001
  2. SPIRIVA HANDIHALER [Suspect]
     Indication: EMPHYSEMA
  3. ASPIRIN [Concomitant]
     Indication: PAIN
  4. ATENOLOL [Concomitant]
     Indication: HYPERTENSION
  5. LISINOPRIL [Concomitant]
     Indication: HYPERTENSION

REACTIONS (11)
  - Malaise [Recovered/Resolved]
  - Dysphonia [Not Recovered/Not Resolved]
  - Oropharyngeal pain [Not Recovered/Not Resolved]
  - Cough [Not Recovered/Not Resolved]
  - Oxygen saturation decreased [Not Recovered/Not Resolved]
  - Dysphonia [Unknown]
  - Oesophagitis [Unknown]
  - Dysphonia [Not Recovered/Not Resolved]
  - Depression [Not Recovered/Not Resolved]
  - Aphasia [Not Recovered/Not Resolved]
  - Product quality issue [Unknown]
